FAERS Safety Report 12776379 (Version 2)
Quarter: 2016Q4

REPORT INFORMATION
  Report Type: Report from Study
  Country: CN (occurrence: CN)
  Receive Date: 20160923
  Receipt Date: 20161018
  Transmission Date: 20170207
  Serious: Yes (Other)
  Sender: FDA-Public Use
  Company Number: CN-OTSUKA-JP-2015-10394

PATIENT
  Age: 42 Year
  Sex: Female

DRUGS (5)
  1. PROBUCOL [Suspect]
     Active Substance: PROBUCOL
     Indication: HYPERCHOLESTEROLAEMIA
     Dosage: 250 MG, BID
     Route: 048
     Dates: start: 20140927, end: 20150121
  2. ASPIRIN. [Concomitant]
     Active Substance: ASPIRIN
     Indication: ACUTE MYOCARDIAL INFARCTION
     Dosage: 100 MG, QD
     Route: 048
     Dates: start: 2011
  3. BLINDED *PLACEBO [Suspect]
     Active Substance: INVESTIGATIONAL PRODUCT
     Indication: HYPERCHOLESTEROLAEMIA
     Dosage: 100 MG, BID
     Route: 048
     Dates: start: 20140927, end: 20150121
  4. BETALOC [Concomitant]
     Active Substance: METOPROLOL TARTRATE
     Indication: ACUTE MYOCARDIAL INFARCTION
     Dosage: 25 MG, BID
     Route: 048
     Dates: start: 2011
  5. BLINDED CILOSTAZOL [Suspect]
     Active Substance: CILOSTAZOL
     Indication: HYPERCHOLESTEROLAEMIA
     Dosage: 100 MG, BID
     Route: 048
     Dates: start: 20140927, end: 20150121

REACTIONS (1)
  - Cholecystitis [Recovered/Resolved]

NARRATIVE: CASE EVENT DATE: 20150118
